FAERS Safety Report 7335493-3 (Version None)
Quarter: 2011Q1

REPORT INFORMATION
  Report Type: 
  Country: None (occurrence: None)
  Receive Date: 20110301
  Receipt Date: 20110301
  Transmission Date: 20110831
  Serious: Yes (Hospitalization)
  Sender: FDA-Public Use
  Company Number: None

PATIENT
  Sex: Male
  Weight: 66.13 kg

DRUGS (28)
  1. ALIMTA [Suspect]
     Indication: NON-SMALL CELL LUNG CANCER METASTATIC
     Dosage: 500 MG M 2 1 X EVERY 3 WEEKS IV
     Route: 042
     Dates: start: 20101010, end: 20110120
  2. BUDESONIDE/FORMOTEROL [Concomitant]
  3. WARFARIN SODIUM [Concomitant]
  4. PLAVIX [Concomitant]
  5. MORPHINE [Concomitant]
  6. OXYCODONE HCL [Concomitant]
  7. ASPIRIN [Concomitant]
  8. BISACODYL [Concomitant]
  9. ZOSYN [Concomitant]
  10. HYOSCYAMINE [Concomitant]
  11. FINASTERIDE [Concomitant]
  12. PROZAC [Concomitant]
  13. UROXATRAL [Concomitant]
  14. GABAPENTIN [Concomitant]
  15. CARBATROL [Concomitant]
  16. ALPRAZOLAM [Concomitant]
  17. DRONABINOL [Concomitant]
  18. NEXIUM [Concomitant]
  19. SIMVASTATIN [Concomitant]
  20. PERCOCET [Concomitant]
  21. HEPARIN [Concomitant]
  22. AMBIEN CR [Concomitant]
  23. FOLIC ACID [Concomitant]
  24. VANCOMYCIN [Concomitant]
  25. COMBIVENT [Concomitant]
  26. FEXOFENADINE [Concomitant]
  27. OXYCONTIN [Concomitant]
  28. SINGULAIR [Concomitant]

REACTIONS (10)
  - FAILURE TO THRIVE [None]
  - PNEUMONIA STAPHYLOCOCCAL [None]
  - ANAEMIA [None]
  - BONE PAIN [None]
  - OEDEMA [None]
  - BACK PAIN [None]
  - MALNUTRITION [None]
  - FAECAL DISIMPACTION [None]
  - BLOOD ALBUMIN DECREASED [None]
  - CONSTIPATION [None]
